FAERS Safety Report 6020715-1 (Version None)
Quarter: 2008Q4

REPORT INFORMATION
  Report Type: 
  Country: None (occurrence: None)
  Receive Date: 20081222
  Receipt Date: 20081210
  Transmission Date: 20090506
  Serious: Yes (Other)
  Sender: FDA-Public Use
  Company Number: PAR_02474_2008

PATIENT
  Age: 39 Year
  Sex: Female

DRUGS (2)
  1. DISULFIRAM [Suspect]
     Indication: DRUG USE FOR UNKNOWN INDICATION
     Dosage: (200 MG QD, AT BEDTIME)
  2. ESCITALOPRAM [Concomitant]

REACTIONS (2)
  - AVERSION [None]
  - STEREOTYPY [None]
